FAERS Safety Report 19905334 (Version 2)
Quarter: 2021Q4

REPORT INFORMATION
  Report Type: Report from Study
  Country: JP (occurrence: JP)
  Receive Date: 20211001
  Receipt Date: 20211121
  Transmission Date: 20220303
  Serious: Yes (Death, Life-Threatening, Other)
  Sender: FDA-Public Use
  Company Number: JP-JNJFOC-A-CH2019-187091

PATIENT
  Age: 79 Year
  Sex: Male

DRUGS (10)
  1. OPSUMIT [Suspect]
     Active Substance: MACITENTAN
     Indication: Pulmonary arterial hypertension
     Dosage: 10 MG, QD
     Route: 048
     Dates: start: 20180928, end: 20181211
  2. OPSUMIT [Suspect]
     Active Substance: MACITENTAN
     Indication: Pulmonary arterial hypertension
  3. WARFARIN [Suspect]
     Active Substance: WARFARIN
     Indication: Embolism
     Dosage: 2.5 MG, QD
     Route: 048
     Dates: start: 20180928, end: 20181204
  4. WARFARIN [Suspect]
     Active Substance: WARFARIN
     Dosage: DOSE UNKNOWN
     Route: 048
     Dates: start: 20181205, end: 20181211
  5. FUROSEMIDE [Concomitant]
     Active Substance: FUROSEMIDE
     Indication: Right ventricular failure
     Route: 048
     Dates: start: 20180928, end: 20181211
  6. SAMSCA [Concomitant]
     Active Substance: TOLVAPTAN
     Indication: Right ventricular failure
     Route: 048
     Dates: start: 20180928, end: 20181211
  7. EPLERENONE [Concomitant]
     Active Substance: EPLERENONE
     Indication: Right ventricular failure
     Dosage: 17MG ONCE A DAY,25MG ONCE A DAY
     Route: 048
     Dates: start: 20180928, end: 20181211
  8. PREDONINE [Concomitant]
     Active Substance: PREDNISOLONE
     Indication: Mixed connective tissue disease
     Route: 048
     Dates: start: 20180928, end: 20181211
  9. TRICHLORMETHIAZIDE [Concomitant]
     Active Substance: TRICHLORMETHIAZIDE
     Indication: Right ventricular failure
     Route: 048
     Dates: start: 20180928, end: 20181211
  10. OXYGEN [Concomitant]
     Active Substance: OXYGEN
     Route: 055

REACTIONS (14)
  - Metastatic gastric cancer [Fatal]
  - Transfusion [Unknown]
  - Haemorrhagic diathesis [Unknown]
  - Haemorrhage subcutaneous [Unknown]
  - Gastrointestinal haemorrhage [Unknown]
  - Haemoglobin decreased [Unknown]
  - Anaemia [Unknown]
  - Decreased appetite [Unknown]
  - Occult blood positive [Unknown]
  - Faeces discoloured [Unknown]
  - Pneumonia [Unknown]
  - Wheezing [Unknown]
  - Dyspnoea [Unknown]
  - Malaise [Unknown]

NARRATIVE: CASE EVENT DATE: 20181101
